FAERS Safety Report 9089378 (Version 2)
Quarter: 2013Q2

REPORT INFORMATION
  Report Type: Spontaneous
  Country: AU (occurrence: AU)
  Receive Date: 20130201
  Receipt Date: 20130417
  Transmission Date: 20140414
  Serious: Yes (Hospitalization)
  Sender: FDA-Public Use
  Company Number: AU-MERCK-1302AUS000026

PATIENT
  Age: 60 Year
  Sex: Female

DRUGS (6)
  1. SAPHRIS [Suspect]
     Indication: SCHIZOPHRENIA
     Dosage: 5MG MANE, 10 MG NOCTE
     Route: 060
  2. CLOZAPINE [Concomitant]
     Dosage: 300MG NOCTE AND 50MG MANE
  3. CITALOPRAM [Concomitant]
     Dosage: 20 MG, QD
  4. FUROSEMIDE [Concomitant]
     Dosage: 40 MG, QD
  5. RABEPRAZOLE SODIUM [Concomitant]
     Dosage: 40 MG, QD
  6. LIPITOR [Concomitant]
     Dosage: 20 MG, QD

REACTIONS (3)
  - Diarrhoea [Unknown]
  - Vomiting [Unknown]
  - Nausea [Unknown]
